FAERS Safety Report 8140848-3 (Version None)
Quarter: 2012Q1

REPORT INFORMATION
  Report Type: 
  Country: None (occurrence: None)
  Receive Date: 20120216
  Receipt Date: 20120208
  Transmission Date: 20120608
  Serious: Yes (Other)
  Sender: FDA-Public Use
  Company Number: DE-JNJFOC-20120204640

PATIENT
  Age: 25 Year
  Sex: Female
  Weight: 74 kg

DRUGS (4)
  1. RISPERDAL [Suspect]
     Indication: PERSONALITY DISORDER
     Route: 048
     Dates: start: 20101207, end: 20110901
  2. SERTRALINE HYDROCHLORIDE [Suspect]
     Indication: PERSONALITY DISORDER
     Route: 048
  3. INSULIN [Concomitant]
     Indication: GESTATIONAL DIABETES
     Route: 058
  4. PROTAPHANE [Concomitant]
     Indication: GESTATIONAL DIABETES
     Route: 058

REACTIONS (3)
  - MATERNAL EXPOSURE DURING PREGNANCY [None]
  - GESTATIONAL DIABETES [None]
  - POLYHYDRAMNIOS [None]
